FAERS Safety Report 12773017 (Version 1)
Quarter: 2016Q3

REPORT INFORMATION
  Report Type: Spontaneous
  Country: US (occurrence: US)
  Receive Date: 20160922
  Receipt Date: 20160922
  Transmission Date: 20161109
  Serious: No
  Sender: FDA-Public Use
  Company Number: US-ALLERGAN-1662607US

PATIENT
  Age: 14 Year
  Sex: Female

DRUGS (1)
  1. ACZONE [Suspect]
     Active Substance: DAPSONE
     Indication: ACNE
     Dosage: UNK, QAM
     Route: 061
     Dates: start: 201606, end: 201606

REACTIONS (1)
  - Application site acne [Recovered/Resolved]

NARRATIVE: CASE EVENT DATE: 201606
